FAERS Safety Report 8979263 (Version 2)
Quarter: 2013Q1

REPORT INFORMATION
  Report Type: Spontaneous
  Country: JP (occurrence: JP)
  Receive Date: 20121221
  Receipt Date: 20130122
  Transmission Date: 20140127
  Serious: Yes (Hospitalization, Other)
  Sender: FDA-Public Use
  Company Number: JP-NOVOPROD-366598

PATIENT
  Age: 14 Year
  Sex: Female

DRUGS (1)
  1. NORDITROPIN [Suspect]
     Indication: GROWTH RETARDATION
     Dosage: UNKNOWN
     Route: 065

REACTIONS (1)
  - Bone disorder [Recovering/Resolving]
